FAERS Safety Report 8004495-6 (Version None)
Quarter: 2011Q4

REPORT INFORMATION
  Report Type: 
  Country: None (occurrence: None)
  Receive Date: 20111221
  Receipt Date: 20111221
  Transmission Date: 20120403
  Serious: Yes (Hospitalization)
  Sender: FDA-Public Use
  Company Number: None

PATIENT
  Age: 83 Year
  Sex: Female
  Weight: 63.1 kg

DRUGS (21)
  1. LOVENOX [Concomitant]
  2. COUMADIN [Suspect]
     Indication: PULMONARY EMBOLISM
     Dosage: RECENT
  3. LOVAZA [Concomitant]
  4. PREDNISONE TAB [Concomitant]
  5. NYSTATIN [Concomitant]
  6. DUONEB [Concomitant]
  7. ASPIRIN [Suspect]
     Indication: CORONARY ARTERY DISEASE
     Dosage: 81 MG DAILY PO CHRONIC
     Route: 048
  8. FOLIC ACID [Concomitant]
  9. SIMVASTATIN [Concomitant]
  10. GLUCOSOMINE [Concomitant]
  11. NYSTATIN [Concomitant]
  12. IRON [Concomitant]
  13. VITAMIN D [Concomitant]
  14. LEVOTHYROXINE SODIUM [Concomitant]
  15. CARDIZEM [Concomitant]
  16. PLAVIX [Suspect]
     Indication: CORONARY ARTERY DISEASE
     Dosage: 75 MG DAILY PO CHRONIC
     Route: 048
  17. CALCIUM CARBONATE [Concomitant]
  18. PROTONIX [Concomitant]
  19. M.V.I. [Concomitant]
  20. ACTONEL [Concomitant]
  21. SYNTHROID [Concomitant]

REACTIONS (4)
  - EROSIVE DUODENITIS [None]
  - GASTRITIS [None]
  - THROMBOSIS [None]
  - HIATUS HERNIA [None]
